FAERS Safety Report 6879292-5 (Version None)
Quarter: 2010Q3

REPORT INFORMATION
  Report Type: 
  Country: None (occurrence: None)
  Receive Date: 20100728
  Receipt Date: 20100720
  Transmission Date: 20110219
  Serious: Yes (Hospitalization)
  Sender: FDA-Public Use
  Company Number: US-SANOFI-AVENTIS-2010SA037160

PATIENT
  Age: 64 Year
  Sex: Female
  Weight: 85 kg

DRUGS (8)
  1. MULTAQ [Suspect]
     Indication: ATRIAL TACHYCARDIA
     Route: 048
     Dates: start: 20100309, end: 20100313
  2. MULTAQ [Suspect]
     Indication: ATRIAL FIBRILLATION
     Route: 048
     Dates: start: 20100309, end: 20100313
  3. TOPROL-XL [Concomitant]
  4. PLAVIX [Concomitant]
  5. CRESTOR [Concomitant]
  6. VITAMINS [Concomitant]
  7. NEXIUM [Concomitant]
  8. CODEINE [Concomitant]

REACTIONS (4)
  - HYPOAESTHESIA [None]
  - SENSATION OF HEAVINESS [None]
  - VENTRICULAR TACHYCARDIA [None]
  - VOMITING [None]
